FAERS Safety Report 5226868-7 (Version None)
Quarter: 2007Q1

REPORT INFORMATION
  Report Type: 
  Country: None (occurrence: None)
  Receive Date: 20070130
  Receipt Date: 20070124
  Transmission Date: 20070707
  Serious: Yes (Death, Hospitalization, Other)
  Sender: FDA-Public Use
  Company Number: 163-20785-07010364

PATIENT
  Age: 73 Year
  Sex: Male

DRUGS (4)
  1. THALOMID [Suspect]
     Indication: MULTIPLE MYELOMA
     Dosage: 200 MG, 1 IN 1 D, ORAL; SEE IMAGE
     Route: 048
     Dates: start: 20060401, end: 20060501
  2. THALOMID [Suspect]
     Indication: MULTIPLE MYELOMA
     Dosage: 200 MG, 1 IN 1 D, ORAL; SEE IMAGE
     Route: 048
     Dates: start: 20060501, end: 20061101
  3. DEXAMETHASONE TAB [Suspect]
     Indication: MULTIPLE MYELOMA
     Dates: start: 20060422
  4. BISPHOSPHONATES (BISPHOSPHONATES) [Concomitant]

REACTIONS (11)
  - ANAEMIA [None]
  - CATHETER SEPSIS [None]
  - CONTUSION [None]
  - MYELOPROLIFERATIVE DISORDER [None]
  - NON-HODGKIN'S LYMPHOMA [None]
  - OEDEMA PERIPHERAL [None]
  - PERFORMANCE STATUS DECREASED [None]
  - PLATELET COUNT DECREASED [None]
  - RENAL FAILURE CHRONIC [None]
  - SHUNT THROMBOSIS [None]
  - SKIN ULCER [None]
